FAERS Safety Report 21909521 (Version 1)
Quarter: 2023Q1

REPORT INFORMATION
  Report Type: Spontaneous
  Country: US (occurrence: US)
  Receive Date: 20230125
  Receipt Date: 20230125
  Transmission Date: 20230418
  Serious: No
  Sender: FDA-Public Use
  Company Number: US-BAYER-2023A004378

PATIENT

DRUGS (2)
  1. ALEVE [Suspect]
     Active Substance: NAPROXEN SODIUM
     Dosage: UNK
  2. FLUTICASONE [Concomitant]
     Active Substance: FLUTICASONE
     Indication: Sinus disorder

REACTIONS (3)
  - Palpitations [Unknown]
  - Dizziness [Unknown]
  - Balance disorder [Unknown]
